FAERS Safety Report 6290737-4 (Version None)
Quarter: 2009Q3

REPORT INFORMATION
  Report Type: 
  Country: None (occurrence: None)
  Receive Date: 20090730
  Receipt Date: 20090721
  Transmission Date: 20100115
  Serious: Yes (Other)
  Sender: FDA-Public Use
  Company Number: FR-AVENTIS-200912669FR

PATIENT
  Age: 57 Year
  Sex: Male

DRUGS (1)
  1. LANTUS [Suspect]
     Route: 058
     Dates: start: 19980101

REACTIONS (1)
  - BONE MARROW TUMOUR CELL INFILTRATION [None]
